FAERS Safety Report 15597770 (Version 1)
Quarter: 2018Q4

REPORT INFORMATION
  Report Type: Spontaneous
  Country: US (occurrence: US)
  Receive Date: 20181108
  Receipt Date: 20181108
  Transmission Date: 20190205
  Serious: Yes (Other)
  Sender: FDA-Public Use
  Company Number: US-PFIZER INC-2018456296

PATIENT
  Age: 54 Year
  Sex: Female

DRUGS (1)
  1. TETRACYCLINE HCL [Suspect]
     Active Substance: TETRACYCLINE HYDROCHLORIDE
     Indication: DIVERTICULITIS
     Dosage: 3 G, DAILY
     Route: 042
     Dates: start: 1970

REACTIONS (4)
  - Hepatic failure [Recovered/Resolved]
  - Hypoglycaemia [Recovered/Resolved]
  - Renal failure [Recovered/Resolved]
  - Coma [Recovered/Resolved]
